FAERS Safety Report 7703726-7 (Version None)
Quarter: 2011Q3

REPORT INFORMATION
  Report Type: 
  Country: None (occurrence: None)
  Receive Date: 20110823
  Receipt Date: 20110818
  Transmission Date: 20111222
  Serious: Yes (Other)
  Sender: FDA-Public Use
  Company Number: US-PFIZER INC-2004063324

PATIENT
  Sex: Female

DRUGS (1)
  1. NEURONTIN [Suspect]
     Indication: NEUROPATHY PERIPHERAL
     Dosage: UNK

REACTIONS (7)
  - HALLUCINATION [None]
  - FEELING ABNORMAL [None]
  - MENTAL DISORDER [None]
  - INJURY [None]
  - VOMITING [None]
  - EMOTIONAL DISTRESS [None]
  - ANXIETY [None]
